FAERS Safety Report 5985073-7 (Version None)
Quarter: 2008Q4

REPORT INFORMATION
  Report Type: 
  Country: None (occurrence: None)
  Receive Date: 20081208
  Receipt Date: 20080616
  Transmission Date: 20090506
  Serious: Yes (Hospitalization)
  Sender: FDA-Public Use
  Company Number: US-AMGEN-QUU281370

PATIENT
  Sex: Female
  Weight: 68.1 kg

DRUGS (6)
  1. ENBREL [Suspect]
     Indication: PSORIASIS
     Route: 058
     Dates: start: 20070803, end: 20080310
  2. LEVOXYL [Concomitant]
  3. SPIRONOLACTONE [Concomitant]
  4. FLUOXETINE [Concomitant]
  5. CENTRUM [Concomitant]
  6. UNSPECIFIED CONTRACEPTIVE [Concomitant]

REACTIONS (2)
  - PSORIASIS [None]
  - THYROID CANCER [None]
